FAERS Safety Report 6071482-7 (Version None)
Quarter: 2009Q1

REPORT INFORMATION
  Report Type: 
  Country: None (occurrence: None)
  Receive Date: 20090206
  Receipt Date: 20090206
  Transmission Date: 20090719
  Serious: Yes (Death)
  Sender: FDA-Public Use
  Company Number: None

PATIENT
  Age: 65 Year
  Sex: Male
  Weight: 72.1219 kg

DRUGS (4)
  1. LORAZEPAM [Suspect]
     Indication: ANXIETY
     Dosage: .5 MG TID ORAL
     Route: 048
     Dates: start: 20080222, end: 20080228
  2. LORAZEPAM [Suspect]
     Dosage: 1.0 MG TID ORAL
     Route: 048
     Dates: start: 20080229, end: 20080322
  3. PANTOPRAZOLE [Concomitant]
  4. CITALOPRAM HYDROBROMIDE [Concomitant]

REACTIONS (7)
  - ANXIETY [None]
  - BLOOD TESTOSTERONE DECREASED [None]
  - COMPLETED SUICIDE [None]
  - DEPRESSION [None]
  - HYPOREFLEXIA [None]
  - MUSCLE TWITCHING [None]
  - SUICIDAL IDEATION [None]
